FAERS Safety Report 5655925-6 (Version None)
Quarter: 2008Q1

REPORT INFORMATION
  Report Type: 
  Country: None (occurrence: None)
  Receive Date: 20080307
  Receipt Date: 20080225
  Transmission Date: 20080703
  Serious: Yes (Disabling)
  Sender: FDA-Public Use
  Company Number: GB-PFIZER INC-2008017697

PATIENT
  Age: 56 Year
  Sex: Female

DRUGS (2)
  1. DOXYCYCLINE [Suspect]
     Indication: EAR INFECTION
     Route: 048
     Dates: start: 20080205, end: 20080208
  2. LIPITOR [Concomitant]
     Route: 048

REACTIONS (2)
  - TINNITUS [None]
  - VERTIGO [None]
